FAERS Safety Report 21489711 (Version 1)
Quarter: 2022Q4

REPORT INFORMATION
  Report Type: Other
  Country: None (occurrence: CN)
  Receive Date: 20221021
  Receipt Date: 20221021
  Transmission Date: 20230113
  Serious: Yes (Hospitalization, Other)
  Sender: FDA-Public Use
  Company Number: CN-Jiangsu Hengrui Medicine Co., Ltd.-2134049

PATIENT
  Age: 74 Year
  Sex: Male
  Weight: 47 kg

DRUGS (2)
  1. GABAPENTIN [Suspect]
     Active Substance: GABAPENTIN
     Indication: Analgesic therapy
     Route: 048
     Dates: start: 20210314, end: 20210316
  2. PREGABALIN [Suspect]
     Active Substance: PREGABALIN
     Route: 048
     Dates: start: 20210314, end: 20210316

REACTIONS (1)
  - Cerebral infarction [Unknown]

NARRATIVE: CASE EVENT DATE: 20210315
